FAERS Safety Report 9150162 (Version 1)
Quarter: 2013Q1

REPORT INFORMATION
  Report Type: Spontaneous
  Country: US (occurrence: US)
  Receive Date: 20130308
  Receipt Date: 20130308
  Transmission Date: 20140127
  Serious: Yes (Hospitalization, Other)
  Sender: FDA-Public Use
  Company Number: US-ABBOTT-13P-163-1056459-00

PATIENT
  Age: 41 Year
  Sex: Female
  Weight: 106.69 kg

DRUGS (5)
  1. HUMIRA [Suspect]
     Indication: CROHN^S DISEASE
     Route: 058
     Dates: start: 201211, end: 20130226
  2. BENICAR HCT [Concomitant]
     Indication: HYPERTENSION
     Dosage: 40/25MG
  3. REMERON [Concomitant]
     Indication: INSOMNIA
  4. XANAX [Concomitant]
     Indication: ANXIETY
  5. PENTASA [Concomitant]
     Indication: PRODUCT USED FOR UNKNOWN INDICATION

REACTIONS (13)
  - Lipase increased [Unknown]
  - Blood potassium decreased [Unknown]
  - Pancreatitis [Recovered/Resolved]
  - Abdominal pain [Unknown]
  - Diarrhoea [Unknown]
  - Rectal haemorrhage [Unknown]
  - Crohn^s disease [Unknown]
  - C-reactive protein increased [Unknown]
  - Occult blood positive [Unknown]
  - White blood cell count increased [Unknown]
  - Haematocrit decreased [Unknown]
  - Haemoglobin decreased [Unknown]
  - Hydrocholecystis [Not Recovered/Not Resolved]
